FAERS Safety Report 23472849 (Version 7)
Quarter: 2025Q4

REPORT INFORMATION
  Report Type: Spontaneous
  Country: EU (occurrence: EU)
  Receive Date: 20240203
  Receipt Date: 20251107
  Transmission Date: 20260118
  Serious: Yes (Death, Hospitalization, Other)
  Sender: CELLTRION
  Company Number: EU-CELLTRION INC.-2024FR002276

PATIENT

DRUGS (45)
  1. TRASTUZUMAB [Suspect]
     Active Substance: TRASTUZUMAB
     Indication: Breast cancer
     Dosage: UNK, (SOLUTION FOR INFUSION)
     Route: 042
     Dates: start: 202111
  2. TRASTUZUMAB [Suspect]
     Active Substance: TRASTUZUMAB
     Indication: Prophylaxis
  3. TRASTUZUMAB [Suspect]
     Active Substance: TRASTUZUMAB
     Indication: Chemotherapy
  4. TRASTUZUMAB [Suspect]
     Active Substance: TRASTUZUMAB
     Indication: Hormone therapy
  5. TRASTUZUMAB [Suspect]
     Active Substance: TRASTUZUMAB
     Indication: Neoplasm malignant
  6. TUCATINIB [Suspect]
     Active Substance: TUCATINIB
     Indication: Breast cancer
     Dosage: UNK
     Route: 048
     Dates: start: 202111
  7. TUCATINIB [Suspect]
     Active Substance: TUCATINIB
     Indication: Prophylaxis
  8. TUCATINIB [Suspect]
     Active Substance: TUCATINIB
     Indication: Chemotherapy
  9. TUCATINIB [Suspect]
     Active Substance: TUCATINIB
     Indication: Hormone therapy
  10. TUCATINIB [Suspect]
     Active Substance: TUCATINIB
     Indication: Neoplasm malignant
  11. CAPECITABINE [Suspect]
     Active Substance: CAPECITABINE
     Indication: Breast cancer
     Dosage: UNK
     Route: 048
     Dates: start: 202111
  12. CAPECITABINE [Suspect]
     Active Substance: CAPECITABINE
     Indication: Prophylaxis
  13. CAPECITABINE [Suspect]
     Active Substance: CAPECITABINE
     Indication: Chemotherapy
  14. CAPECITABINE [Suspect]
     Active Substance: CAPECITABINE
     Indication: Hormone therapy
  15. CAPECITABINE [Suspect]
     Active Substance: CAPECITABINE
     Indication: Neoplasm malignant
  16. PACLITAXEL [Suspect]
     Active Substance: PACLITAXEL
     Indication: Breast cancer
     Dosage: UNK
     Route: 042
     Dates: start: 202012
  17. PACLITAXEL [Suspect]
     Active Substance: PACLITAXEL
     Indication: Neoplasm malignant
  18. PACLITAXEL [Suspect]
     Active Substance: PACLITAXEL
     Indication: Chemotherapy
  19. PACLITAXEL [Suspect]
     Active Substance: PACLITAXEL
     Indication: Hormone therapy
  20. PACLITAXEL [Suspect]
     Active Substance: PACLITAXEL
     Indication: Neoplasm malignant
  21. PACLITAXEL [Suspect]
     Active Substance: PACLITAXEL
     Indication: Prophylaxis
  22. PERTUZUMAB [Suspect]
     Active Substance: PERTUZUMAB
     Indication: Breast cancer
     Dosage: UNK
     Route: 042
     Dates: start: 202012
  23. PERTUZUMAB [Suspect]
     Active Substance: PERTUZUMAB
     Indication: Neoplasm malignant
  24. PERTUZUMAB [Suspect]
     Active Substance: PERTUZUMAB
     Indication: Chemotherapy
  25. PERTUZUMAB [Suspect]
     Active Substance: PERTUZUMAB
     Indication: Hormone therapy
  26. PERTUZUMAB [Suspect]
     Active Substance: PERTUZUMAB
     Indication: Neoplasm malignant
  27. PERTUZUMAB [Suspect]
     Active Substance: PERTUZUMAB
     Indication: Prophylaxis
  28. TRASTUZUMAB DERUXTECAN [Suspect]
     Active Substance: TRASTUZUMAB DERUXTECAN
     Indication: Prophylaxis
     Dosage: UNK
     Route: 042
     Dates: start: 202012
  29. TRASTUZUMAB DERUXTECAN [Suspect]
     Active Substance: TRASTUZUMAB DERUXTECAN
     Indication: HER2 positive breast cancer
     Dosage: UNK
     Route: 042
     Dates: start: 202111
  30. LETROZOLE [Suspect]
     Active Substance: LETROZOLE
     Indication: Hormone therapy
     Dosage: UNK
     Route: 065
  31. LETROZOLE [Suspect]
     Active Substance: LETROZOLE
     Indication: Breast cancer
  32. LETROZOLE [Suspect]
     Active Substance: LETROZOLE
     Indication: Chemotherapy
  33. LETROZOLE [Suspect]
     Active Substance: LETROZOLE
     Indication: Neoplasm malignant
  34. LETROZOLE [Suspect]
     Active Substance: LETROZOLE
     Indication: Prophylaxis
  35. CYCLOPHOSPHAMIDE\EPIRUBICIN HYDROCHLORIDE\FLUOROURACIL [Suspect]
     Active Substance: CYCLOPHOSPHAMIDE\EPIRUBICIN HYDROCHLORIDE\FLUOROURACIL
     Indication: Chemotherapy
     Dosage: UNK (3 FEC)
     Route: 042
  36. TAXOTERE [Suspect]
     Active Substance: DOCETAXEL
     Indication: Chemotherapy
     Dosage: UNK (3 TAXOTERE TRASTUZUMAB)
     Route: 042
     Dates: start: 202012
  37. TAXOTERE [Suspect]
     Active Substance: DOCETAXEL
     Indication: Breast cancer
     Dosage: UNK
     Route: 065
  38. TAXOTERE [Suspect]
     Active Substance: DOCETAXEL
     Indication: Hormone therapy
  39. TAXOTERE [Suspect]
     Active Substance: DOCETAXEL
     Indication: Neoplasm malignant
  40. TAXOTERE [Suspect]
     Active Substance: DOCETAXEL
     Indication: Prophylaxis
  41. DOCETAXEL [Suspect]
     Active Substance: DOCETAXEL
     Indication: Breast cancer
     Dosage: UNK
     Route: 065
  42. DOCETAXEL [Suspect]
     Active Substance: DOCETAXEL
     Indication: Chemotherapy
  43. DOCETAXEL [Suspect]
     Active Substance: DOCETAXEL
     Indication: Hormone therapy
  44. DOCETAXEL [Suspect]
     Active Substance: DOCETAXEL
     Indication: Neoplasm malignant
  45. DOCETAXEL [Suspect]
     Active Substance: DOCETAXEL
     Indication: Prophylaxis

REACTIONS (22)
  - Metastases to meninges [Fatal]
  - Glossopharyngeal nerve paralysis [Fatal]
  - Hyperproteinaemia [Fatal]
  - Diplopia [Fatal]
  - Epilepsy [Fatal]
  - Neurological decompensation [Fatal]
  - Dysarthria [Fatal]
  - Fall [Fatal]
  - Hypoglycaemia [Fatal]
  - Haematoma [Fatal]
  - Paraesthesia [Fatal]
  - Disease progression [Fatal]
  - Metastases to adrenals [Fatal]
  - Cerebral haematoma [Fatal]
  - Altered state of consciousness [Fatal]
  - Metastases to lymph nodes [Fatal]
  - Metastases to liver [Fatal]
  - Metastases to bone [Fatal]
  - Metastases to lung [Fatal]
  - Cerebral haematoma [Fatal]
  - Drug ineffective [Fatal]
  - Intentional product use issue [Unknown]

NARRATIVE: CASE EVENT DATE: 20201001
